FAERS Safety Report 7606585-6 (Version None)
Quarter: 2011Q3

REPORT INFORMATION
  Report Type: 
  Country: None (occurrence: None)
  Receive Date: 20110713
  Receipt Date: 20110701
  Transmission Date: 20111222
  Serious: Yes (Other)
  Sender: FDA-Public Use
  Company Number: PHHY2011DE58440

PATIENT
  Sex: Male

DRUGS (1)
  1. ZOMETA [Suspect]
     Dosage: 4 MG/5ML, EVERY 4 WEEKS
     Route: 042
     Dates: start: 20060101, end: 20110101

REACTIONS (1)
  - OSTEONECROSIS OF JAW [None]
